FAERS Safety Report 6190543-5 (Version None)
Quarter: 2009Q2

REPORT INFORMATION
  Report Type: 
  Country: None (occurrence: None)
  Receive Date: 20090514
  Receipt Date: 20090508
  Transmission Date: 20091009
  Serious: Yes (Death, Hospitalization)
  Sender: FDA-Public Use
  Company Number: US-JNJFOC-20051103243

PATIENT
  Age: 9 Month
  Sex: Female
  Weight: 9.5 kg

DRUGS (11)
  1. ACETAMINOPHEN [Suspect]
     Indication: COUGH
     Route: 048
  2. ACETAMINOPHEN [Suspect]
     Indication: RHINORRHOEA
     Route: 048
  3. ACETAMINOPHEN [Suspect]
     Indication: PYREXIA
     Dosage: 1 TSP Q4H FOR 4 DAYS
     Route: 048
  4. ACETAMINOPHEN [Suspect]
     Route: 048
  5. ACETAMINOPHEN [Suspect]
     Route: 048
  6. ACETAMINOPHEN [Suspect]
     Dosage: UNSPECIFIED DOSE FOR 4 DAYS
     Route: 048
  7. ACETAMINOPHEN [Suspect]
     Indication: COUGH
     Route: 048
  8. ACETAMINOPHEN [Suspect]
     Indication: RHINORRHOEA
     Route: 048
  9. ACETAMINOPHEN [Suspect]
     Indication: PYREXIA
     Dosage: 325 MG TABLET(S) CRUSHED INTO INFANT'S FORMULA
     Route: 048
  10. OVER-THE-COUNTER COLD MEDICATION [Concomitant]
  11. INFANT'S FORMULA [Concomitant]
     Route: 048

REACTIONS (5)
  - ACUTE HEPATIC FAILURE [None]
  - INCORRECT DRUG DOSAGE FORM ADMINISTERED [None]
  - OVERDOSE [None]
  - RENAL FAILURE [None]
  - SEPTIC SHOCK [None]
